FAERS Safety Report 14555196 (Version 1)
Quarter: 2018Q1

REPORT INFORMATION
  Report Type: Spontaneous
  Country: US (occurrence: US)
  Receive Date: 20180220
  Receipt Date: 20180220
  Transmission Date: 20180509
  Serious: No
  Sender: FDA-Public Use
  Company Number: US-ACTELION-A-US2017-159524

PATIENT
  Age: 67 Year
  Sex: Female

DRUGS (25)
  1. TRACLEER [Suspect]
     Active Substance: BOSENTAN
     Indication: PULMONARY ARTERIAL HYPERTENSION
     Dosage: 125 MG, BID
     Route: 048
     Dates: start: 20150903
  2. VITAMIN D [Concomitant]
     Active Substance: CHOLECALCIFEROL
  3. SODIUM BICARBONATE. [Concomitant]
     Active Substance: SODIUM BICARBONATE
  4. VITAMIN E [Concomitant]
     Active Substance: .ALPHA.-TOCOPHEROL
  5. ROPINIROLE. [Concomitant]
     Active Substance: ROPINIROLE
  6. ORENITRAM [Concomitant]
     Active Substance: TREPROSTINIL
  7. TORSEMIDE. [Concomitant]
     Active Substance: TORSEMIDE
  8. NIACIN. [Concomitant]
     Active Substance: NIACIN
  9. MULTIVITAMIN [Concomitant]
     Active Substance: VITAMINS
  10. GABAPENTIN. [Concomitant]
     Active Substance: GABAPENTIN
  11. PROMACTA [Concomitant]
     Active Substance: ELTROMBOPAG OLAMINE
  12. PROBIOTIC PEARLS [Concomitant]
  13. CRANBERRY. [Concomitant]
     Active Substance: CRANBERRY
  14. CITRUCEL [Concomitant]
     Active Substance: METHYLCELLULOSE (4000 MPA.S)
  15. ULORIC [Concomitant]
     Active Substance: FEBUXOSTAT
  16. CARTIA XT [Concomitant]
     Active Substance: DILTIAZEM HYDROCHLORIDE
  17. CALCITRIOL. [Concomitant]
     Active Substance: CALCITRIOL
  18. ZANTAC [Concomitant]
     Active Substance: RANITIDINE HYDROCHLORIDE
  19. ASPIRIN 81 [Concomitant]
     Active Substance: ASPIRIN
  20. FERROUS SULFATE. [Concomitant]
     Active Substance: FERROUS SULFATE
  21. VITAMIN B1 [Concomitant]
     Active Substance: THIAMINE HYDROCHLORIDE
  22. PROLIA [Concomitant]
     Active Substance: DENOSUMAB
  23. HUMALOG [Concomitant]
     Active Substance: INSULIN LISPRO
  24. PRAVASTATIN. [Concomitant]
     Active Substance: PRAVASTATIN
  25. POTASSIUM CHLORIDE. [Concomitant]
     Active Substance: POTASSIUM CHLORIDE

REACTIONS (4)
  - Alopecia [Not Recovered/Not Resolved]
  - Hypotension [Unknown]
  - Sinus congestion [Not Recovered/Not Resolved]
  - Nausea [Not Recovered/Not Resolved]
